FAERS Safety Report 20722584 (Version 1)
Quarter: 2022Q2

REPORT INFORMATION
  Report Type: Spontaneous
  Country: US (occurrence: US)
  Receive Date: 20220418
  Receipt Date: 20220418
  Transmission Date: 20220720
  Serious: No
  Sender: FDA-Public Use
  Company Number: US-SUN PHARMACEUTICAL INDUSTRIES LTD-2021R1-291259

PATIENT
  Sex: Male

DRUGS (1)
  1. NALTREXONE [Suspect]
     Active Substance: NALTREXONE
     Indication: Product used for unknown indication
     Dosage: UNK ( 2 CAPSULES)
     Route: 065

REACTIONS (12)
  - Pain [Unknown]
  - Myalgia [Unknown]
  - Product dosage form issue [Unknown]
  - Arthralgia [Unknown]
  - Visual impairment [Unknown]
  - Neuralgia [Unknown]
  - Decreased appetite [Unknown]
  - Illness [Unknown]
  - Nervousness [Unknown]
  - Pain in extremity [Unknown]
  - Vascular pain [Unknown]
  - Eye pain [Unknown]
